FAERS Safety Report 8190240-0 (Version None)
Quarter: 2012Q1

REPORT INFORMATION
  Report Type: 
  Country: None (occurrence: None)
  Receive Date: 20120307
  Receipt Date: 20120301
  Transmission Date: 20120608
  Serious: Yes (Hospitalization)
  Sender: FDA-Public Use
  Company Number: CZ-AMGEN-CZECT2012001852

PATIENT
  Age: 71 Year
  Sex: Female

DRUGS (5)
  1. OMEPRAZOLE [Concomitant]
  2. VITAMIN D [Concomitant]
     Dosage: 665 IU, UNK
  3. XGEVA [Suspect]
     Indication: OSTEOPOROSIS POSTMENOPAUSAL
     Dosage: 60 MG, Q6MO
     Route: 058
     Dates: start: 20071220
  4. GENATON [Concomitant]
     Dosage: UNK UNK, TID
  5. CALCIUM [Concomitant]
     Dosage: 1000 MG, UNK

REACTIONS (1)
  - OSTEOARTHRITIS [None]
